FAERS Safety Report 6506829-8 (Version None)
Quarter: 2009Q4

REPORT INFORMATION
  Report Type: 
  Country: None (occurrence: None)
  Receive Date: 20091221
  Receipt Date: 20091210
  Transmission Date: 20100525
  Serious: Yes (Other)
  Sender: FDA-Public Use
  Company Number: US-WYE-H12572609

PATIENT
  Sex: Female
  Weight: 99.88 kg

DRUGS (4)
  1. PRISTIQ [Suspect]
     Indication: DEPRESSION
     Route: 048
     Dates: start: 20080101
  2. ATIVAN [Concomitant]
     Dosage: UNKNOWN
  3. GLUCOPHAGE [Concomitant]
     Dosage: UNKNOWN
  4. PRAVASTATIN [Concomitant]
     Dosage: UNKNOWN

REACTIONS (3)
  - HEPATIC ENZYME INCREASED [None]
  - RED BLOOD CELL BURR CELLS PRESENT [None]
  - WHITE BLOOD CELL AGGLUTINATION PRESENT [None]
